FAERS Safety Report 21837923 (Version 1)
Quarter: 2023Q1

REPORT INFORMATION
  Report Type: Spontaneous
  Country: US (occurrence: None)
  Receive Date: 20230109
  Receipt Date: 20230109
  Transmission Date: 20230417
  Serious: No
  Sender: FDA-Public Use
  Company Number: 2022A416460

PATIENT
  Age: 64 Year
  Sex: Female
  Weight: 140.6 kg

DRUGS (2)
  1. FASENRA [Suspect]
     Active Substance: BENRALIZUMAB
     Indication: Asthma
     Dosage: 30MG/ML EVERY FOUR WEEKS
     Route: 058
     Dates: start: 20221123
  2. FASENRA [Suspect]
     Active Substance: BENRALIZUMAB
     Indication: Eosinophil count increased
     Dosage: 30MG/ML EVERY FOUR WEEKS
     Route: 058
     Dates: start: 20221123

REACTIONS (6)
  - Dyspnoea [Unknown]
  - Tachycardia [Unknown]
  - Fatigue [Unknown]
  - Lung disorder [Unknown]
  - Wheezing [Unknown]
  - Hypokinesia [Unknown]

NARRATIVE: CASE EVENT DATE: 20220101
